FAERS Safety Report 9548831 (Version 2)
Quarter: 2013Q3

REPORT INFORMATION
  Report Type: Spontaneous
  Country: US (occurrence: US)
  Receive Date: 20130924
  Receipt Date: 20130926
  Transmission Date: 20140515
  Serious: No
  Sender: FDA-Public Use
  Company Number: US-TEVA-434110USA

PATIENT
  Age: 58 Year
  Sex: Female
  Weight: 112.59 kg

DRUGS (3)
  1. NUVIGIL [Suspect]
     Indication: POST-TRAUMATIC STRESS DISORDER
     Dates: start: 201303, end: 201308
  2. SEROQUEL XL [Concomitant]
     Indication: POST-TRAUMATIC STRESS DISORDER
  3. SERTRALINE [Concomitant]
     Indication: POST-TRAUMATIC STRESS DISORDER

REACTIONS (3)
  - Drug ineffective for unapproved indication [Recovered/Resolved]
  - Inappropriate schedule of drug administration [Recovered/Resolved]
  - Off label use [Recovered/Resolved]
